FAERS Safety Report 23853111 (Version 2)
Quarter: 2024Q2

REPORT INFORMATION
  Report Type: Spontaneous
  Country: US (occurrence: US)
  Receive Date: 20240514
  Receipt Date: 20240520
  Transmission Date: 20240716
  Serious: No
  Sender: FDA-Public Use
  Company Number: US-AMGEN-USASP2024093958

PATIENT
  Age: 22 Year
  Sex: Female

DRUGS (6)
  1. OTEZLA [Suspect]
     Active Substance: APREMILAST
     Indication: Psoriasis
     Dosage: 30 MILLIGRAM, BID
     Route: 048
     Dates: start: 20240216, end: 20240424
  2. ONDANSETRON [Concomitant]
     Active Substance: ONDANSETRON
  3. FLUCONAZOLE [Concomitant]
     Active Substance: FLUCONAZOLE
  4. IBUPROFEN [Concomitant]
     Active Substance: IBUPROFEN
  5. NYSTOP [Concomitant]
     Active Substance: NYSTATIN
  6. KETOCONAZOLE [Concomitant]
     Active Substance: KETOCONAZOLE

REACTIONS (2)
  - Headache [Recovered/Resolved]
  - Vomiting [Recovered/Resolved]

NARRATIVE: CASE EVENT DATE: 20240420
